FAERS Safety Report 5888171-1 (Version None)
Quarter: 2008Q3

REPORT INFORMATION
  Report Type: 
  Country: None (occurrence: None)
  Receive Date: 20080918
  Receipt Date: 20080905
  Transmission Date: 20090109
  Serious: Yes (Other)
  Sender: FDA-Public Use
  Company Number: US-ELI_LILLY_AND_COMPANY-US200809001652

PATIENT
  Sex: Female

DRUGS (5)
  1. EVISTA [Suspect]
     Dosage: UNK, UNKNOWN
     Route: 065
  2. FOSAMAX [Concomitant]
     Dosage: UNK, UNKNOWN
     Route: 065
  3. COREG [Concomitant]
     Indication: HYPERTENSION
     Dosage: 3.125 MG, 2/D
     Route: 065
  4. IMDUR [Concomitant]
     Indication: ANGINA PECTORIS
     Dosage: 150 MG, EACH EVENING
     Route: 065
  5. BONIVA [Concomitant]
     Indication: OSTEOPOROSIS
     Dosage: 150 MG, MONTHLY (1/M)
     Route: 065
     Dates: start: 20060101, end: 20070401

REACTIONS (2)
  - DYSPHAGIA [None]
  - THROAT TIGHTNESS [None]
